FAERS Safety Report 9143353 (Version 2)
Quarter: 2013Q2

REPORT INFORMATION
  Report Type: Spontaneous
  Country: DK (occurrence: DK)
  Receive Date: 20130306
  Receipt Date: 20130508
  Transmission Date: 20140414
  Serious: Yes (Hospitalization)
  Sender: FDA-Public Use
  Company Number: DK-PFIZER INC-2013071741

PATIENT
  Age: 40 Year
  Sex: Female
  Weight: 100 kg

DRUGS (5)
  1. PACLITAXEL [Suspect]
     Indication: OVARIAN CANCER
     Dosage: 350 MG, UNK
     Route: 042
     Dates: start: 20110418, end: 20110418
  2. PACLITAXEL [Suspect]
     Dosage: 350 MG, UNK
     Route: 042
     Dates: start: 20110801, end: 20110801
  3. CARBOPLATIN [Suspect]
     Indication: OVARIAN CANCER
     Dosage: 410 MG, UNK
     Route: 042
     Dates: start: 20110418, end: 20110418
  4. CARBOPLATIN [Suspect]
     Dosage: 750 MG, UNK
     Route: 042
     Dates: start: 20110801, end: 20110801
  5. NINTEDANIB [Concomitant]
     Indication: OVARIAN CANCER
     Dosage: 400 MG
     Route: 048
     Dates: start: 20110419

REACTIONS (4)
  - Febrile neutropenia [Recovered/Resolved]
  - Blood potassium decreased [Recovered/Resolved]
  - Blood magnesium decreased [Recovered/Resolved]
  - Haemoglobin abnormal [Recovered/Resolved]
